FAERS Safety Report 6461706-6 (Version None)
Quarter: 2009Q4

REPORT INFORMATION
  Report Type: 
  Country: None (occurrence: None)
  Receive Date: 20091123
  Receipt Date: 20091109
  Transmission Date: 20100525
  Serious: Yes (Death, Hospitalization)
  Sender: FDA-Public Use
  Company Number: 2009AC000128

PATIENT
  Age: 47 Year
  Sex: Male

DRUGS (14)
  1. DIGOXIN [Suspect]
     Dosage: 0.25 MG; QD; PO
     Route: 048
     Dates: start: 20050422
  2. LISINOPRIL [Concomitant]
  3. FUROSEMIDE [Concomitant]
  4. POTASSIUM [Concomitant]
  5. NEXIUM [Concomitant]
  6. MULTI-VITAMIN [Concomitant]
  7. ADVAIR DISKUS 100/50 [Concomitant]
  8. ALBUTEROL [Concomitant]
  9. CYCLOBENZAPRIN [Concomitant]
  10. ADVAIR DISKUS 100/50 [Concomitant]
  11. ROXICET [Concomitant]
  12. METHYLPRED [Concomitant]
  13. AMOX TR-K CL [Concomitant]
  14. CEPHALEXIN [Concomitant]

REACTIONS (17)
  - ARTERIOSCLEROSIS CORONARY ARTERY [None]
  - ASTHMA [None]
  - BACK PAIN [None]
  - CARDIAC ARREST [None]
  - CONGESTIVE CARDIOMYOPATHY [None]
  - ECONOMIC PROBLEM [None]
  - EMOTIONAL DISTRESS [None]
  - FAMILY STRESS [None]
  - FATIGUE [None]
  - HYPERLIPIDAEMIA [None]
  - MULTIPLE INJURIES [None]
  - PAIN [None]
  - PARTNER STRESS [None]
  - PULMONARY HYPERTENSION [None]
  - SINUS BRADYCARDIA [None]
  - SLEEP APNOEA SYNDROME [None]
  - SOCIAL PROBLEM [None]
